FAERS Safety Report 5806473-1 (Version None)
Quarter: 2008Q3

REPORT INFORMATION
  Report Type: 
  Country: None (occurrence: None)
  Receive Date: 20080710
  Receipt Date: 20070619
  Transmission Date: 20090109
  Serious: Yes (Other)
  Sender: FDA-Public Use
  Company Number: US-BAYER-US-2006-038925

PATIENT
  Age: 46 Year
  Sex: Female

DRUGS (4)
  1. CAMPATH [Suspect]
     Indication: BONE MARROW CONDITIONING REGIMEN
  2. CYCLOPHOSPHAMIDE [Suspect]
     Indication: BONE MARROW CONDITIONING REGIMEN
  3. ANTIINFECTIVES [Concomitant]
     Indication: INFECTION PROPHYLAXIS
  4. FILGRASTIM [Concomitant]
     Indication: COLONY STIMULATING FACTOR THERAPY

REACTIONS (3)
  - ANAEMIA [None]
  - IDIOPATHIC THROMBOCYTOPENIC PURPURA [None]
  - LEUKOPENIA [None]
